FAERS Safety Report 5584564-0 (Version None)
Quarter: 2008Q1

REPORT INFORMATION
  Report Type: 
  Country: None (occurrence: None)
  Receive Date: 20080103
  Receipt Date: 20071219
  Transmission Date: 20080703
  Serious: Yes (Hospitalization)
  Sender: FDA-Public Use
  Company Number: S07-FRA-06491-01

PATIENT
  Age: 26 Year
  Sex: Female

DRUGS (5)
  1. ESCITALOPRAM [Suspect]
     Indication: DEPRESSION
     Dosage: 10 MG QD PO
     Route: 048
     Dates: start: 20070323, end: 20070501
  2. LAMICTAL [Suspect]
     Dosage: 50 MG QD PO
     Route: 048
     Dates: start: 20070419, end: 20070430
  3. SURMONTIL [Concomitant]
  4. IBUPROFEN [Suspect]
     Dosage: 1 QD PO
     Route: 048
     Dates: start: 20070429, end: 20070429
  5. SURMONTAL            (TRIMIPRAMINE) [Concomitant]

REACTIONS (6)
  - EPIDERMAL NECROSIS [None]
  - EPSTEIN-BARR VIRUS INFECTION [None]
  - HYPERTHERMIA [None]
  - ODYNOPHAGIA [None]
  - PARVOVIRUS B19 SEROLOGY POSITIVE [None]
  - TOXIC SKIN ERUPTION [None]
